FAERS Safety Report 17940282 (Version 1)
Quarter: 2020Q2

REPORT INFORMATION
  Report Type: Spontaneous
  Country: US (occurrence: US)
  Receive Date: 20200624
  Receipt Date: 20200624
  Transmission Date: 20200714
  Serious: Yes (Hospitalization)
  Sender: FDA-Public Use
  Company Number: None

PATIENT
  Age: 76 Year
  Sex: Female

DRUGS (1)
  1. VERZENIO [Suspect]
     Active Substance: ABEMACICLIB
     Route: 048
     Dates: start: 20200506

REACTIONS (5)
  - Blood count abnormal [None]
  - Diarrhoea [None]
  - Palpitations [None]
  - Hot flush [None]
  - Chills [None]

NARRATIVE: CASE EVENT DATE: 20200603
